FAERS Safety Report 5084160-8 (Version None)
Quarter: 2006Q3

REPORT INFORMATION
  Report Type: 
  Country: None (occurrence: None)
  Receive Date: 20060821
  Receipt Date: 20060815
  Transmission Date: 20061208
  Serious: Yes (Death, Congenital Anomaly)
  Sender: FDA-Public Use
  Company Number: PHEH2006US10465

PATIENT
  Age: 3 Month
  Sex: Female
  Weight: 5.895 kg

DRUGS (10)
  1. TEGRETOL [Suspect]
     Route: 064
  2. COMBIVIR [Suspect]
     Route: 064
  3. VALPROATE SODIUM [Suspect]
     Route: 064
  4. NELFINAVIR MESILATE [Concomitant]
     Dosage: UNK, UNK
     Route: 064
     Dates: end: 20060526
  5. KALETRA [Concomitant]
     Route: 064
  6. FOLIC ACID [Concomitant]
     Route: 064
  7. METRONIDAZOLE [Concomitant]
     Route: 064
  8. CO-TRIMOXAZOLE [Concomitant]
     Route: 064
  9. FLUCONAZOLE [Concomitant]
     Route: 064
  10. AZITHROMYCIN [Concomitant]
     Route: 064

REACTIONS (10)
  - ARNOLD-CHIARI MALFORMATION [None]
  - ATRIAL SEPTAL DEFECT [None]
  - DRUG EXPOSURE DURING PREGNANCY [None]
  - DYSPNOEA [None]
  - MENINGOMYELOCELE [None]
  - PULMONARY ARTERY STENOSIS CONGENITAL [None]
  - RESPIRATORY DISTRESS [None]
  - SPINA BIFIDA [None]
  - SPINE MALFORMATION [None]
  - VENTRICULAR SEPTAL DEFECT [None]
